FAERS Safety Report 8314896-4 (Version None)
Quarter: 2012Q2

REPORT INFORMATION
  Report Type: 
  Country: None (occurrence: None)
  Receive Date: 20120426
  Receipt Date: 20120418
  Transmission Date: 20120825
  Serious: Yes (Other)
  Sender: FDA-Public Use
  Company Number: US-JNJFOC-20120408623

PATIENT
  Sex: Male

DRUGS (5)
  1. REMICADE [Suspect]
     Route: 042
     Dates: start: 20120101
  2. REMICADE [Suspect]
     Indication: CROHN'S DISEASE
     Route: 042
  3. PREDNISONE TAB [Concomitant]
     Route: 065
  4. ENTOCORT EC [Concomitant]
     Route: 065
  5. ASACOL [Concomitant]
     Route: 065

REACTIONS (2)
  - DEPRESSION [None]
  - MEMORY IMPAIRMENT [None]
